FAERS Safety Report 7348744 (Version 2)
Quarter: 2013Q3

REPORT INFORMATION
  Report Type: Spontaneous
  Country: IL (occurrence: None)
  Receive Date: 20100322
  Receipt Date: 20130708
  Transmission Date: 20140515
  Serious: Yes (Other)
  Sender: FDA-Public Use
  Company Number: AUR-APL-2010-00679

PATIENT
  Age: 78 Year
  Sex: Male

DRUGS (4)
  1. SIMVASTATIN [Suspect]
     Indication: PRODUCT USED FOR UNKNOWN INDICATION
  2. CILAZAPRIL (VASCASE PLUS) [Concomitant]
  3. ALENDRONATE (FOSALAN) [Concomitant]
  4. AMLODIPINE [Concomitant]

REACTIONS (5)
  - Dermatitis bullous [None]
  - Rash papular [None]
  - Pruritus generalised [None]
  - Rash morbilliform [None]
  - Pemphigoid [None]
